FAERS Safety Report 5637250-2 (Version None)
Quarter: 2008Q1

REPORT INFORMATION
  Report Type: 
  Country: None (occurrence: None)
  Receive Date: 20080225
  Receipt Date: 20070725
  Transmission Date: 20080703
  Serious: Yes (Other)
  Sender: FDA-Public Use
  Company Number: US-BRISTOL-MYERS SQUIBB COMPANY-13856901

PATIENT
  Sex: Female

DRUGS (2)
  1. KENALOG-10 [Suspect]
  2. SODIUM CHLORIDE [Concomitant]

REACTIONS (1)
  - CUSHINGOID [None]
